FAERS Safety Report 15186618 (Version 2)
Quarter: 2019Q1

REPORT INFORMATION
  Report Type: Report from Study
  Country: US (occurrence: US)
  Receive Date: 20180723
  Receipt Date: 20190130
  Transmission Date: 20190417
  Serious: No
  Sender: FDA-Public Use
  Company Number: US-EXELIXIS-CABO-17011630

PATIENT
  Age: 60 Year
  Sex: Female

DRUGS (12)
  1. CABOMETYX [Suspect]
     Active Substance: CABOZANTINIB S-MALATE
     Indication: BRAIN NEOPLASM
     Dosage: 20 MG, QD
     Route: 048
  2. CARVEDILOL PHOSPHATE. [Concomitant]
     Active Substance: CARVEDILOL PHOSPHATE
  3. OXYCODONE HYDROCHLORIDE. [Concomitant]
     Active Substance: OXYCODONE HYDROCHLORIDE
  4. ZOLPIDEM TARTATE [Concomitant]
     Active Substance: ZOLPIDEM TARTRATE
  5. PROMETHAZINE HYDROCHLORIDE. [Concomitant]
     Active Substance: PROMETHAZINE HYDROCHLORIDE
  6. LORAZEPAM. [Concomitant]
     Active Substance: LORAZEPAM
  7. METHYLPHENIDATE HYDROCHLORIDE. [Concomitant]
     Active Substance: METHYLPHENIDATE HYDROCHLORIDE
  8. CABOMETYX [Suspect]
     Active Substance: CABOZANTINIB S-MALATE
     Indication: MALIGNANT NEOPLASM OF RENAL PELVIS
  9. ESTROGEN [Concomitant]
     Active Substance: ESTROGENS
  10. ONDANSETRON [Concomitant]
     Active Substance: ONDANSETRON
  11. CABOMETYX [Suspect]
     Active Substance: CABOZANTINIB S-MALATE
     Indication: CHOLANGIOCARCINOMA
     Dosage: 60 MG, QD
     Route: 048
     Dates: start: 20160823
  12. CITALOPRAM [Concomitant]
     Active Substance: CITALOPRAM HYDROBROMIDE

REACTIONS (2)
  - Malaise [Unknown]
  - Off label use [Unknown]

NARRATIVE: CASE EVENT DATE: 20171206
